FAERS Safety Report 7741069-6 (Version None)
Quarter: 2011Q3

REPORT INFORMATION
  Report Type: 
  Country: None (occurrence: None)
  Receive Date: 20110909
  Receipt Date: 20110906
  Transmission Date: 20111222
  Serious: Yes (Other)
  Sender: FDA-Public Use
  Company Number: CA-ABBOTT-11P-028-0852137-00

PATIENT
  Sex: Female
  Weight: 93.07 kg

DRUGS (3)
  1. HYDROCHLOROTHIAZIDE [Concomitant]
     Indication: PRODUCT USED FOR UNKNOWN INDICATION
     Dosage: 25 MG
  2. MAVIK [Suspect]
     Dates: start: 20110421
  3. MAVIK [Suspect]
     Indication: ESSENTIAL HYPERTENSION
     Dosage: 0 DOSES HAVE BEEN MISSED BETWEEN THE VISITS.
     Route: 048
     Dates: start: 20100805

REACTIONS (1)
  - BLOOD PRESSURE INADEQUATELY CONTROLLED [None]
